FAERS Safety Report 6411441-5 (Version None)
Quarter: 2009Q4

REPORT INFORMATION
  Report Type: 
  Country: None (occurrence: None)
  Receive Date: 20091023
  Receipt Date: 20090922
  Transmission Date: 20100525
  Serious: No
  Sender: FDA-Public Use
  Company Number: US-BAYER-200931130NA

PATIENT
  Age: 63 Year
  Sex: Female
  Weight: 59 kg

DRUGS (2)
  1. CLIMARA PRO [Suspect]
     Indication: HORMONE REPLACEMENT THERAPY
     Dosage: 0.045 MG/DAY ESTRADIOL AND 0.015 MG/DAY LEVONORGESTREL
     Route: 062
  2. THYROID THERAPY [Concomitant]

REACTIONS (1)
  - PRURITUS [None]
